FAERS Safety Report 14307388 (Version 1)
Quarter: 2017Q4

REPORT INFORMATION
  Report Type: Spontaneous
  Country: US (occurrence: US)
  Receive Date: 20171219
  Receipt Date: 20171219
  Transmission Date: 20180321
  Serious: Yes (Hospitalization, Disabling, Other)
  Sender: FDA-Public Use
  Company Number: None

PATIENT
  Age: 50 Year
  Sex: Female
  Weight: 75.15 kg

DRUGS (8)
  1. ZOLPIDEN [Concomitant]
  2. FISH OIL [Concomitant]
     Active Substance: FISH OIL
  3. CALCIUM/MAGNESIUM [Concomitant]
     Active Substance: CALCIUM\MAGNESIUM
  4. VITAMIN D [Concomitant]
     Active Substance: CHOLECALCIFEROL
  5. THORNE MERIDA [Concomitant]
  6. EQUATE [Concomitant]
     Active Substance: UNSPECIFIED INGREDIENT
  7. LEVOTHYROXIN [Concomitant]
     Active Substance: LEVOTHYROXINE
  8. METHYL CPG [Suspect]
     Active Substance: BETAINE\FOLIC ACID\METHYLCOBALAMIN\PYRIDOXINE\RIBOFLAVIN
     Indication: AUTONOMIC NEUROPATHY
     Dosage: ?          QUANTITY:60 CAPSULE(S);?
     Route: 048
     Dates: start: 20170616, end: 20171110

REACTIONS (5)
  - Anxiety [None]
  - Confusional state [None]
  - Blood prolactin increased [None]
  - Feeling abnormal [None]
  - Blood pressure increased [None]

NARRATIVE: CASE EVENT DATE: 20171018
